FAERS Safety Report 5810548-0 (Version None)
Quarter: 2008Q3

REPORT INFORMATION
  Report Type: 
  Country: None (occurrence: None)
  Receive Date: 20080715
  Receipt Date: 20080704
  Transmission Date: 20090109
  Serious: Yes (Hospitalization)
  Sender: FDA-Public Use
  Company Number: FR-PFIZER INC-2008056225

PATIENT
  Age: 52 Year
  Sex: Female

DRUGS (6)
  1. TRIFLUCAN [Suspect]
     Route: 042
     Dates: start: 20080418, end: 20080421
  2. TRASTUZUMAB [Suspect]
     Route: 042
  3. TAXOTERE [Suspect]
     Route: 042
  4. CIFLOX [Suspect]
     Route: 042
     Dates: start: 20080418, end: 20080421
  5. ROCEPHIN [Suspect]
     Route: 042
     Dates: start: 20080418, end: 20080421
  6. VANCOMYCIN HCL [Suspect]
     Route: 042
     Dates: start: 20080418, end: 20080419

REACTIONS (2)
  - CYTOLYTIC HEPATITIS [None]
  - RENAL FAILURE ACUTE [None]
